FAERS Safety Report 5819259-9 (Version None)
Quarter: 2008Q3

REPORT INFORMATION
  Report Type: 
  Country: None (occurrence: None)
  Receive Date: 20080718
  Receipt Date: 20080422
  Transmission Date: 20090109
  Serious: Yes (Hospitalization, Other)
  Sender: FDA-Public Use
  Company Number: 2008AP001064

PATIENT
  Sex: Male

DRUGS (4)
  1. APO-PAROXETINE(PAROXETINE HYDROCHLORIDE) [Suspect]
     Indication: PANIC DISORDER WITH AGORAPHOBIA
     Dosage: 20 MG;QD; TRPL
     Route: 064
     Dates: start: 20070101, end: 20070101
  2. APO-SERTRALINE  (SERTRALINE HYDROCHLORIDE) [Suspect]
     Indication: PANIC DISORDER WITH AGORAPHOBIA
     Dosage: 50 MG;QD, TRPL
     Route: 064
     Dates: start: 20070101, end: 20071120
  3. XANAX [Suspect]
     Indication: PANIC DISORDER WITH AGORAPHOBIA
     Dosage: 0.50 MG;TAB;TRPL;PRN;   0.25 MG;TAB;TRPL;PRN
     Route: 064
     Dates: start: 20070101, end: 20070101
  4. XANAX [Suspect]
     Indication: PANIC DISORDER WITH AGORAPHOBIA
     Dosage: 0.50 MG;TAB;TRPL;PRN;   0.25 MG;TAB;TRPL;PRN
     Route: 064
     Dates: start: 20070101, end: 20071120

REACTIONS (3)
  - CONGENITAL ANOMALY [None]
  - MATERNAL DRUGS AFFECTING FOETUS [None]
  - VENTRICULAR SEPTAL DEFECT [None]
